FAERS Safety Report 11494745 (Version 3)
Quarter: 2015Q4

REPORT INFORMATION
  Report Type: Spontaneous
  Country: US (occurrence: US)
  Receive Date: 20150911
  Receipt Date: 20151028
  Transmission Date: 20160304
  Serious: Yes (Other)
  Sender: FDA-Public Use
  Company Number: US-ASTELLAS-2015US031897

PATIENT
  Sex: Female

DRUGS (2)
  1. PROGRAF [Suspect]
     Active Substance: TACROLIMUS\TACROLIMUS ANHYDROUS
     Indication: RENAL TRANSPLANT
     Route: 048
  2. PROGRAF [Suspect]
     Active Substance: TACROLIMUS\TACROLIMUS ANHYDROUS
     Indication: RENAL TRANSPLANT
     Dosage: 0.5 MG, TWICE DAILY
     Route: 048

REACTIONS (9)
  - Parathyroidectomy [Unknown]
  - Dyspnoea [Recovered/Resolved]
  - Blood calcium decreased [Unknown]
  - Cardiac arrest [Recovered/Resolved]
  - Eye infection [Unknown]
  - Coma [Recovered/Resolved]
  - Tremor [Recovered/Resolved]
  - Abasia [Not Recovered/Not Resolved]
  - Brain injury [Not Recovered/Not Resolved]
